FAERS Safety Report 13779700 (Version 1)
Quarter: 2017Q3

REPORT INFORMATION
  Report Type: Spontaneous
  Country: None (occurrence: PT)
  Receive Date: 20170722
  Receipt Date: 20170722
  Transmission Date: 20171127
  Serious: Yes (Hospitalization, Other)
  Sender: FDA-Public Use
  Company Number: PT-AUROBINDO-AUR-APL-2010-01148

PATIENT

DRUGS (2)
  1. TERBINAFINA AUROBINDO 125MG [Suspect]
     Active Substance: TERBINAFINE HYDROCHLORIDE
     Indication: ONYCHOMYCOSIS
     Dosage: UNK UNK,UNK,UNKNOWN,UNKNOWN
     Route: 065
  2. GALENIC/HUDROCHLOROTHIAZIDE/IRBESARTAN/(HYDROCHLOROTHIAZIDE, IRBESARTA [Concomitant]
     Indication: HYPERTENSION
     Dosage: UNK UNK,UNK,UNKNOWN,UNKNOWN
     Route: 065

REACTIONS (12)
  - Pruritus [Unknown]
  - Hepatic necrosis [Unknown]
  - Asthenia [Unknown]
  - Choluria [Unknown]
  - Cholestasis [Unknown]
  - Alanine aminotransferase increased [Unknown]
  - Blood bilirubin increased [Unknown]
  - Blood alkaline phosphatase increased [Unknown]
  - Hepatomegaly [Unknown]
  - Jaundice [Unknown]
  - Hepatitis toxic [Unknown]
  - Aspartate aminotransferase increased [Unknown]
